FAERS Safety Report 19201036 (Version 1)
Quarter: 2021Q2

REPORT INFORMATION
  Report Type: Report from Study
  Country: US (occurrence: US)
  Receive Date: 20210430
  Receipt Date: 20210430
  Transmission Date: 20210717
  Serious: Yes (Other)
  Sender: FDA-Public Use
  Company Number: US-JNJFOC-20210437763

PATIENT
  Sex: Female
  Weight: 72.7 kg

DRUGS (3)
  1. ADEMPAS [Concomitant]
     Active Substance: RIOCIGUAT
  2. OPSUMIT [Concomitant]
     Active Substance: MACITENTAN
  3. EPOPROSTENOL SODIUM. [Suspect]
     Active Substance: EPOPROSTENOL SODIUM
     Indication: PULMONARY ARTERIAL HYPERTENSION
     Route: 042

REACTIONS (5)
  - Weight decreased [Recovering/Resolving]
  - Overdose [Unknown]
  - Diarrhoea [Recovering/Resolving]
  - Underdose [Unknown]
  - Vomiting [Recovering/Resolving]
